FAERS Safety Report 9316820 (Version 1)
Quarter: 2013Q2

REPORT INFORMATION
  Report Type: Spontaneous
  Country: US (occurrence: None)
  Receive Date: 20130522
  Receipt Date: 20130522
  Transmission Date: 20140414
  Serious: Yes (Death)
  Sender: FDA-Public Use
  Company Number: CIP-2013-00133

PATIENT
  Sex: 0

DRUGS (3)
  1. CARBOPLATIN [Suspect]
     Indication: NON-SMALL CELL LUNG CANCER
     Dosage: AUC 5 (DAY 1 OF 21 DAY CYCLES), INTRAVENOUS (NOT OTHERWISE SPECIFIED)?
  2. PEMETREXED [Suspect]
     Indication: NON-SMALL CELL LUNG CANCER
     Dosage: (500 MG/M2,DAY 1 OF 21 DAY CYCLES), INTRAVENOUS (NOT OTHERWISE SPECIFIED)?
  3. BEVACIZUMAB [Suspect]
     Indication: NON-SMALL CELL LUNG CANCER
     Dosage: (15 MG/KG, DAY 1 OF 21 DAY CYCLES), INTRAVENOUS (NOT OTHERWISE SPECIFIED)?

REACTIONS (1)
  - Pulmonary haemorrhage [None]
